FAERS Safety Report 4469781-5 (Version None)
Quarter: 2004Q4

REPORT INFORMATION
  Report Type: 
  Country: None (occurrence: None)
  Receive Date: 20041008
  Receipt Date: 20040927
  Transmission Date: 20050328
  Serious: Yes (Congenital Anomaly)
  Sender: FDA-Public Use
  Company Number: FI-ROCHE-381503

PATIENT
  Age: 1 Day
  Sex: Male
  Weight: 3.1 kg

DRUGS (4)
  1. NAPROXEN [Suspect]
     Indication: MIGRAINE
  2. BISOPROLOL FUMARATE [Suspect]
     Indication: MIGRAINE
  3. SUMATRIPTAN [Suspect]
     Indication: MIGRAINE
  4. PARACETAMOL [Suspect]
     Indication: MIGRAINE

REACTIONS (14)
  - BONE DISORDER [None]
  - BREECH PRESENTATION [None]
  - CAESAREAN SECTION [None]
  - CLEFT LIP AND PALATE [None]
  - DRUG EXPOSURE DURING PREGNANCY [None]
  - FACIAL DYSMORPHISM [None]
  - FINGER DEFORMITY [None]
  - HYPERTELORISM OF ORBIT [None]
  - LOWER LIMB DEFORMITY [None]
  - MONOPARESIS [None]
  - PARESIS [None]
  - PELVIC DEFORMITY [None]
  - SPEECH DISORDER DEVELOPMENTAL [None]
  - TOE DEFORMITY [None]
